FAERS Safety Report 6727741-5 (Version None)
Quarter: 2010Q2

REPORT INFORMATION
  Report Type: 
  Country: None (occurrence: None)
  Receive Date: 20100514
  Receipt Date: 20100514
  Transmission Date: 20101027
  Serious: Yes (Death, Life-Threatening, Hospitalization)
  Sender: FDA-Public Use
  Company Number: None

PATIENT
  Sex: Female
  Weight: 67 kg

DRUGS (7)
  1. ONCASPAR [Suspect]
     Indication: ACUTE LYMPHOCYTIC LEUKAEMIA
     Dosage: 4400 IU ONCE PER CYCLE IV DRIP
     Route: 041
     Dates: start: 20100503, end: 20100503
  2. NOREEPINEPHRINE [Concomitant]
  3. VASOPRESSIN [Concomitant]
  4. EPINEPHRINE [Concomitant]
  5. PRESSORS [Concomitant]
  6. TOBRAMYCIN [Concomitant]
  7. MOXIFLOXACIN [Concomitant]

REACTIONS (8)
  - ACIDOSIS [None]
  - BRADYCARDIA [None]
  - CARDIAC ARREST [None]
  - HYPERNATRAEMIA [None]
  - MULTI-ORGAN FAILURE [None]
  - PANCYTOPENIA [None]
  - SEPTIC SHOCK [None]
  - STENOTROPHOMONAS INFECTION [None]
